FAERS Safety Report 16410598 (Version 1)
Quarter: 2019Q2

REPORT INFORMATION
  Report Type: Report from Study
  Country: US (occurrence: US)
  Receive Date: 20190610
  Receipt Date: 20190610
  Transmission Date: 20190711
  Serious: Yes (Other)
  Sender: FDA-Public Use
  Company Number: US-BAYER-2019-108306

PATIENT
  Age: 74 Year
  Sex: Male

DRUGS (1)
  1. NEXAVAR [Suspect]
     Active Substance: SORAFENIB
     Dosage: 400 MG, BID
     Route: 048
     Dates: start: 20190411, end: 20190527

REACTIONS (3)
  - Gait inability [None]
  - Cardiac disorder [Unknown]
  - Heart rate increased [None]

NARRATIVE: CASE EVENT DATE: 20190527
